FAERS Safety Report 4638177-5 (Version None)
Quarter: 2005Q2

REPORT INFORMATION
  Report Type: 
  Country: None (occurrence: None)
  Receive Date: 20050415
  Receipt Date: 20050407
  Transmission Date: 20051028
  Serious: Yes (Death, Hospitalization, Other)
  Sender: FDA-Public Use
  Company Number: A-US2005-09182

PATIENT
  Age: 63 Year
  Sex: Female
  Weight: 76.2 kg

DRUGS (7)
  1. TRACLEER [Suspect]
     Indication: PULMONARY HYPERTENSION
     Dosage: SEE IMAGE
     Route: 048
     Dates: start: 20050121, end: 20050220
  2. TRACLEER [Suspect]
     Indication: PULMONARY HYPERTENSION
     Dosage: SEE IMAGE
     Route: 048
     Dates: start: 20050221, end: 20050301
  3. SYNTHROID [Concomitant]
  4. BUMEX (NUMETANIDE) [Concomitant]
  5. POTASSIUM CHLORIDE [Concomitant]
  6. RHINOCORT [Concomitant]
  7. ATROVENT [Concomitant]

REACTIONS (14)
  - ALANINE AMINOTRANSFERASE INCREASED [None]
  - ASPARTATE AMINOTRANSFERASE INCREASED [None]
  - BLOOD ALKALINE PHOSPHATASE INCREASED [None]
  - CARDIAC FAILURE CONGESTIVE [None]
  - CONDITION AGGRAVATED [None]
  - CYANOSIS [None]
  - DECREASED APPETITE [None]
  - DIZZINESS [None]
  - LARYNGITIS [None]
  - NAUSEA [None]
  - ORTNER'S SYNDROME [None]
  - PULMONARY HYPERTENSION [None]
  - RESPIRATORY ARREST [None]
  - RIGHT VENTRICULAR FAILURE [None]
